FAERS Safety Report 19182938 (Version 1)
Quarter: 2021Q2

REPORT INFORMATION
  Report Type: Spontaneous
  Country: CA (occurrence: CA)
  Receive Date: 20210426
  Receipt Date: 20210426
  Transmission Date: 20210717
  Serious: Yes (Other)
  Sender: FDA-Public Use
  Company Number: CA-JNJFOC-20210442519

PATIENT
  Age: 55 Year
  Sex: Female

DRUGS (3)
  1. INFLIXIMAB, RECOMBINANT [Suspect]
     Active Substance: INFLIXIMAB
     Indication: CROHN^S DISEASE
     Route: 042
  2. PANTOPRAZOLE [Concomitant]
     Active Substance: PANTOPRAZOLE
  3. GABAPENTIN. [Concomitant]
     Active Substance: GABAPENTIN

REACTIONS (16)
  - Eye swelling [Unknown]
  - Malaise [Unknown]
  - Infection [Unknown]
  - Oropharyngeal pain [Unknown]
  - Eye discharge [Unknown]
  - Swelling face [Unknown]
  - Cough [Unknown]
  - Pyrexia [Unknown]
  - Condition aggravated [Unknown]
  - Erythema [Unknown]
  - Pain [Unknown]
  - Nasal oedema [Unknown]
  - Ocular discomfort [Unknown]
  - Hypersensitivity [Unknown]
  - Discomfort [Unknown]
  - Infected fistula [Unknown]
